FAERS Safety Report 6536977-8 (Version None)
Quarter: 2010Q1

REPORT INFORMATION
  Report Type: 
  Country: None (occurrence: None)
  Receive Date: 20100107
  Receipt Date: 20081217
  Transmission Date: 20100710
  Serious: Yes (Other)
  Sender: FDA-Public Use
  Company Number: 2009AP001461

PATIENT
  Age: 11 Year
  Sex: Female

DRUGS (7)
  1. ALBUTEROL SULFATE [Suspect]
     Indication: ASTHMA
     Dosage: 7.5 MG, QH; INH, 15 MG; INH
     Route: 055
  2. IPRATROPIUM BROMIDE [Suspect]
     Dosage: 500 UG;
  3. AMINOPHYLLINE [Suspect]
     Dosage: 5 MG/KG; IVBOL
     Route: 040
  4. METHYLPREDNISOLONE [Suspect]
     Indication: BLOOD POTASSIUM
     Dosage: 2 MG/KG; 1 MG/KG; Q6H;
  5. MAGNESIUM [Concomitant]
  6. LEVOSALBUTAMOL [Concomitant]
  7. HYDROCHLORIDE [Concomitant]

REACTIONS (3)
  - HEART RATE INCREASED [None]
  - LACTIC ACIDOSIS [None]
  - WHEEZING [None]
